FAERS Safety Report 14480675 (Version 1)
Quarter: 2018Q1

REPORT INFORMATION
  Report Type: Report from Study
  Country: US (occurrence: US)
  Receive Date: 20180202
  Receipt Date: 20180202
  Transmission Date: 20180509
  Serious: Yes (Other)
  Sender: FDA-Public Use
  Company Number: US-JNJFOC-20180139340

PATIENT
  Sex: Male

DRUGS (8)
  1. CEPHALEXIN                         /00145501/ [Concomitant]
     Active Substance: CEPHALEXIN
     Route: 065
  2. BUPROPION. [Concomitant]
     Active Substance: BUPROPION
     Route: 065
  3. ELEUTHEROCOCCUS SENTICOSUS ROOT EXTRACT [Concomitant]
     Route: 065
  4. IMBRUVICA [Suspect]
     Active Substance: IBRUTINIB
     Indication: CHRONIC LYMPHOCYTIC LEUKAEMIA
     Route: 048
     Dates: start: 20171206
  5. MELATONIN [Concomitant]
     Active Substance: MELATONIN
     Route: 065
  6. AMINO ACIDS NOS [Concomitant]
     Active Substance: AMINO ACIDS
     Route: 065
  7. LITHIUM. [Concomitant]
     Active Substance: LITHIUM
     Route: 065
  8. MINERAL OIL. [Concomitant]
     Active Substance: MINERAL OIL
     Route: 065

REACTIONS (5)
  - Nasopharyngitis [Not Recovered/Not Resolved]
  - Deafness unilateral [Not Recovered/Not Resolved]
  - Dyspnoea [Not Recovered/Not Resolved]
  - Influenza like illness [Not Recovered/Not Resolved]
  - Otitis media [Not Recovered/Not Resolved]
